FAERS Safety Report 18299638 (Version 2)
Quarter: 2021Q1

REPORT INFORMATION
  Report Type: Spontaneous
  Country: US (occurrence: US)
  Receive Date: 20200923
  Receipt Date: 20210223
  Transmission Date: 20210419
  Serious: Yes (Other)
  Sender: FDA-Public Use
  Company Number: US-GILEAD-2020-0495267

PATIENT
  Age: 62 Year
  Sex: Male

DRUGS (8)
  1. COMPLERA [Suspect]
     Active Substance: EMTRICITABINE\RILPIVIRINE HYDROCHLORIDE\TENOFOVIR DISOPROXIL FUMARATE
     Indication: HIV INFECTION
     Dosage: UNK
     Route: 048
     Dates: start: 2001
  2. ATRIPLA [Suspect]
     Active Substance: EFAVIRENZ\EMTRICITABINE\TENOFOVIR DISOPROXIL FUMARATE
     Indication: HIV INFECTION
     Dosage: UNK
     Route: 048
     Dates: start: 2001
  3. CALCIUM [Concomitant]
     Active Substance: CALCIUM
  4. VITAMIN D [VITAMIN D NOS] [Concomitant]
     Active Substance: VITAMIN D NOS
  5. STRIBILD [Suspect]
     Active Substance: COBICISTAT\ELVITEGRAVIR\EMTRICITABINE\TENOFOVIR DISOPROXIL FUMARATE
     Indication: HIV INFECTION
     Dosage: UNK
     Route: 048
     Dates: start: 2001
  6. FOSAMAX [Concomitant]
     Active Substance: ALENDRONATE SODIUM
  7. VIREAD [Suspect]
     Active Substance: TENOFOVIR DISOPROXIL FUMARATE
     Indication: HIV INFECTION
     Dosage: UNK
     Route: 048
     Dates: start: 20021216, end: 20030920
  8. TRUVADA [Suspect]
     Active Substance: EMTRICITABINE\TENOFOVIR DISOPROXIL FUMARATE
     Indication: HIV INFECTION
     Dosage: UNK
     Route: 048
     Dates: start: 2001

REACTIONS (12)
  - Bone disorder [Unknown]
  - Emotional distress [Unknown]
  - Skeletal injury [Unknown]
  - Osteoporosis [Not Recovered/Not Resolved]
  - Anhedonia [Unknown]
  - Osteoarthritis [Not Recovered/Not Resolved]
  - End stage renal disease [Not Recovered/Not Resolved]
  - Pain [Unknown]
  - Renal injury [Unknown]
  - Chronic kidney disease [Not Recovered/Not Resolved]
  - Nephropathy [Unknown]
  - Anxiety [Unknown]

NARRATIVE: CASE EVENT DATE: 2005
